FAERS Safety Report 16100386 (Version 1)
Quarter: 2019Q1

REPORT INFORMATION
  Report Type: Spontaneous
  Country: PR (occurrence: PR)
  Receive Date: 20190321
  Receipt Date: 20190321
  Transmission Date: 20190418
  Serious: No
  Sender: FDA-Public Use
  Company Number: PR-PFIZER INC-2018418303

PATIENT
  Age: 8 Year
  Sex: Male
  Weight: 22.68 kg

DRUGS (2)
  1. GENOTROPIN [Suspect]
     Active Substance: SOMATROPIN
     Indication: HORMONE THERAPY
     Dosage: 0.8 MG, 1X/DAY (EVERY NIGHT BEFORE BED)
     Dates: start: 20180920
  2. GENOTROPIN [Suspect]
     Active Substance: SOMATROPIN
     Dosage: UNK

REACTIONS (5)
  - Device issue [Unknown]
  - Product dose omission [Unknown]
  - Injection site mass [Unknown]
  - Wrong technique in device usage process [Unknown]
  - Injection site pain [Unknown]

NARRATIVE: CASE EVENT DATE: 20181005
